FAERS Safety Report 5706279-8 (Version None)
Quarter: 2008Q2

REPORT INFORMATION
  Report Type: 
  Country: None (occurrence: None)
  Receive Date: 20080415
  Receipt Date: 20080401
  Transmission Date: 20081010
  Serious: Yes (Death, Hospitalization)
  Sender: FDA-Public Use
  Company Number: NL-GENENTECH-258699

PATIENT
  Sex: Male

DRUGS (11)
  1. AVASTIN [Suspect]
     Indication: COLORECTAL CANCER
     Dosage: 472.5 MG, QD
     Route: 042
     Dates: start: 20071109, end: 20071109
  2. CAPECITABINE [Suspect]
     Indication: COLORECTAL CANCER
     Dosage: 2000 MG, QD
     Route: 048
     Dates: start: 20071109, end: 20071204
  3. IRINOTECAN HCL [Suspect]
     Indication: COLORECTAL CANCER
  4. PARACETAMOL [Concomitant]
     Indication: DRUG USE FOR UNKNOWN INDICATION
  5. DICLOFENAC SODIUM [Concomitant]
     Indication: DRUG USE FOR UNKNOWN INDICATION
  6. GLIMEPIRIDE [Concomitant]
     Indication: DRUG USE FOR UNKNOWN INDICATION
  7. METOCLOPRAMIDE [Concomitant]
     Indication: DRUG USE FOR UNKNOWN INDICATION
  8. NEXIUM [Concomitant]
     Indication: DRUG USE FOR UNKNOWN INDICATION
  9. CELIPROLOL [Concomitant]
     Indication: DRUG USE FOR UNKNOWN INDICATION
  10. MOVICOLON [Concomitant]
     Indication: DRUG USE FOR UNKNOWN INDICATION
  11. ASCAL [Concomitant]
     Indication: DRUG USE FOR UNKNOWN INDICATION

REACTIONS (3)
  - INTESTINAL OBSTRUCTION [None]
  - NEOPLASM PROGRESSION [None]
  - NEUTROPENIC SEPSIS [None]
